FAERS Safety Report 15610799 (Version 1)
Quarter: 2018Q4

REPORT INFORMATION
  Report Type: Spontaneous
  Country: US (occurrence: US)
  Receive Date: 20181113
  Receipt Date: 20181113
  Transmission Date: 20190205
  Serious: No
  Sender: FDA-Public Use
  Company Number: US-ROCHE-2133415

PATIENT
  Sex: Female

DRUGS (2)
  1. PRESERVISION [Concomitant]
     Active Substance: MINERALS\VITAMINS
     Route: 048
  2. LUCENTIS [Suspect]
     Active Substance: RANIBIZUMAB
     Indication: NEOVASCULAR AGE-RELATED MACULAR DEGENERATION
     Route: 065
     Dates: start: 2016

REACTIONS (2)
  - Visual acuity reduced [Recovering/Resolving]
  - Impaired driving ability [Recovering/Resolving]
